FAERS Safety Report 7866334-3 (Version None)
Quarter: 2011Q4

REPORT INFORMATION
  Report Type: 
  Country: None (occurrence: None)
  Receive Date: 20111028
  Receipt Date: 20110531
  Transmission Date: 20120403
  Serious: No
  Sender: FDA-Public Use
  Company Number: US-GLAXOSMITHKLINE-A0929866A

PATIENT
  Age: 80 Year
  Sex: Female

DRUGS (12)
  1. FISH OIL [Concomitant]
  2. ICAPS [Concomitant]
  3. TRAMADOL HCL [Concomitant]
  4. NASONEX [Concomitant]
  5. AMOXICILLIN [Concomitant]
  6. CALCIUM CARBONATE [Concomitant]
  7. PROVENTIL [Concomitant]
  8. SYNTHROID [Concomitant]
  9. ADVAIR DISKUS 100/50 [Suspect]
     Indication: ASTHMA
     Dosage: 1PUFF TWICE PER DAY
     Route: 055
     Dates: start: 20110510
  10. GLUCOSAMINE [Concomitant]
  11. VITAMIN B-12 [Concomitant]
  12. ACIPHEX [Concomitant]

REACTIONS (3)
  - TONGUE DISORDER [None]
  - OROPHARYNGEAL BLISTERING [None]
  - OROPHARYNGEAL PAIN [None]
